FAERS Safety Report 4634305-6 (Version None)
Quarter: 2005Q2

REPORT INFORMATION
  Report Type: 
  Country: None (occurrence: None)
  Receive Date: 20050413
  Receipt Date: 20041220
  Transmission Date: 20051028
  Serious: Yes (Death)
  Sender: FDA-Public Use
  Company Number: PHBS2004JP17087

PATIENT
  Age: 3 Year
  Sex: Male

DRUGS (6)
  1. ZOMETA [Suspect]
     Indication: JUVENILE CHRONIC MYELOMONOCYTIC LEUKAEMIA
     Dosage: 1.6 MG, ONCE/SINGLE
     Dates: start: 20041101, end: 20041101
  2. ZOMETA [Suspect]
     Dosage: 3.2 MG, ONCE/SINGLE
     Dates: start: 20041108, end: 20041108
  3. ZOMETA [Suspect]
     Dosage: 4 MG, ONCE/SINGLE
     Dates: start: 20041115, end: 20041115
  4. CYLOCIDE [Concomitant]
     Indication: JUVENILE CHRONIC MYELOMONOCYTIC LEUKAEMIA
     Dosage: 60 MG/DAY
     Route: 042
     Dates: start: 20041104, end: 20041108
  5. VITAMIN D [Concomitant]
  6. CALCIUM GLUCONATE [Concomitant]

REACTIONS (6)
  - BLOOD CALCIUM DECREASED [None]
  - BLOOD PHOSPHORUS DECREASED [None]
  - HYPOCALCAEMIA [None]
  - HYPOPHOSPHATAEMIA [None]
  - MALIGNANT NEOPLASM PROGRESSION [None]
  - RESPIRATORY FAILURE [None]
